FAERS Safety Report 21208649 (Version 1)
Quarter: 2022Q3

REPORT INFORMATION
  Report Type: Spontaneous
  Country: US (occurrence: None)
  Receive Date: 20220811
  Receipt Date: 20220811
  Transmission Date: 20221026
  Serious: No
  Sender: FDA-Public Use
  Company Number: None

PATIENT

DRUGS (1)
  1. SYMJEPI [Suspect]
     Active Substance: EPINEPHRINE

REACTIONS (2)
  - Product label issue [None]
  - Device use confusion [None]
